FAERS Safety Report 21946696 (Version 1)
Quarter: 2023Q1

REPORT INFORMATION
  Report Type: Spontaneous
  Country: US (occurrence: US)
  Receive Date: 20230202
  Receipt Date: 20230202
  Transmission Date: 20230417
  Serious: No
  Sender: FDA-Public Use
  Company Number: US-INCYTE CORPORATION-2022IN009576

PATIENT

DRUGS (3)
  1. OPZELURA [Suspect]
     Active Substance: RUXOLITINIB PHOSPHATE
     Indication: Dermatitis atopic
     Route: 065
  2. CIBINQO [Concomitant]
     Active Substance: ABROCITINIB
     Indication: Dermatitis atopic
     Dosage: 100 MILLIGRAM, QD (TAKE ONE TABLET PO QD, 30 TABLET REFILLS: 2)
     Route: 048
  3. CIBINQO [Concomitant]
     Active Substance: ABROCITINIB
     Indication: Rash

REACTIONS (2)
  - Papule [Unknown]
  - Skin plaque [Unknown]
